FAERS Safety Report 9665901 (Version 2)
Quarter: 2013Q4

REPORT INFORMATION
  Report Type: Spontaneous
  Country: US (occurrence: None)
  Receive Date: 20131031
  Receipt Date: 20131112
  Transmission Date: 20140711
  Serious: Yes (Disabling, Other)
  Sender: FDA-Public Use
  Company Number: 1310-1366

PATIENT
  Age: 82 Year
  Sex: Male

DRUGS (3)
  1. EYELEA (AFLIBERCEPT) (INJECTION) (AFLIBERCEPT) [Suspect]
     Indication: MACULAR DEGENERATION
     Dosage: 2MG INTRAVITREAL
     Dates: start: 201304
  2. COUMADIN (WARFARIN SODIUM) [Concomitant]
     Indication: MACULAR DEGENERATION
  3. ANTIHYPERTENSIVE MEDICATION (ANTIHYPERTESIVES) [Concomitant]

REACTIONS (4)
  - Visual impairment [None]
  - Eye haemorrhage [None]
  - Retinal haemorrhage [None]
  - Visual acuity reduced [None]
